FAERS Safety Report 17727543 (Version 2)
Quarter: 2020Q2

REPORT INFORMATION
  Report Type: Spontaneous
  Country: PL (occurrence: PL)
  Receive Date: 20200430
  Receipt Date: 20200602
  Transmission Date: 20200714
  Serious: Yes (Other)
  Sender: FDA-Public Use
  Company Number: NVSC2020PL114949

PATIENT
  Weight: 2.12 kg

DRUGS (1)
  1. PREDNISONE. [Suspect]
     Active Substance: PREDNISONE
     Indication: FOETAL EXPOSURE DURING PREGNANCY
     Dosage: MATERNAL DOSE: 15 MG QD
     Route: 064

REACTIONS (3)
  - Low birth weight baby [Unknown]
  - Strabismus [Unknown]
  - Foetal exposure during pregnancy [Unknown]
